FAERS Safety Report 22624603 (Version 2)
Quarter: 2023Q4

REPORT INFORMATION
  Report Type: Other
  Country: IN (occurrence: None)
  Receive Date: 20230621
  Receipt Date: 20231115
  Transmission Date: 20240109
  Serious: Yes (Other)
  Sender: FDA-Public Use
  Company Number: IN-ROCHE-3368729

PATIENT
  Age: 59 Year
  Sex: Female

DRUGS (1)
  1. PERJETA [Suspect]
     Active Substance: PERTUZUMAB
     Indication: Breast cancer
     Route: 042
     Dates: start: 20230411

REACTIONS (4)
  - Interstitial lung disease [Unknown]
  - Lung disorder [Unknown]
  - Pneumonia [Unknown]
  - Oxygen saturation decreased [Unknown]
